FAERS Safety Report 4596189-4 (Version None)
Quarter: 2005Q1

REPORT INFORMATION
  Report Type: 
  Country: None (occurrence: None)
  Receive Date: 20050225
  Receipt Date: 20050211
  Transmission Date: 20050727
  Serious: Yes (Death, Other)
  Sender: FDA-Public Use
  Company Number: USA-2002-0003492

PATIENT
  Age: 17 Year
  Sex: Male

DRUGS (3)
  1. OXYCONTIN [Suspect]
     Dosage: MG
  2. XANAX [Suspect]
     Dosage: MG
  3. ALCOHOL (ETHANOL) [Suspect]

REACTIONS (7)
  - COMA [None]
  - DRUG ABUSER [None]
  - FATIGUE [None]
  - FEELING ABNORMAL [None]
  - FEELING COLD [None]
  - HANGOVER [None]
  - RESPIRATORY ARREST [None]
